FAERS Safety Report 7214226-5 (Version None)
Quarter: 2011Q1

REPORT INFORMATION
  Report Type: 
  Country: None (occurrence: None)
  Receive Date: 20110107
  Receipt Date: 20101228
  Transmission Date: 20110831
  Serious: Yes (Hospitalization, Disabling, Other)
  Sender: FDA-Public Use
  Company Number: US-ELI_LILLY_AND_COMPANY-US201011001834

PATIENT
  Sex: Female

DRUGS (7)
  1. DIOVAN [Concomitant]
     Dosage: 80 MG, UNK
  2. METOPROLOL [Concomitant]
  3. COUMADIN [Concomitant]
  4. EVISTA [Suspect]
     Indication: OSTEOPOROSIS
     Dosage: 60 MG, DAILY (1/D)
  5. CALCIUM +VIT D [Concomitant]
     Dosage: UNK, 3/D
  6. FORTEO [Suspect]
     Indication: OSTEOPOROSIS
     Dosage: 20 UG, DAILY (1/D)
  7. ASPIRIN [Concomitant]

REACTIONS (23)
  - BONE DISORDER [None]
  - BREAST CANCER [None]
  - ATRIAL FIBRILLATION [None]
  - CARDIAC DISORDER [None]
  - BONE DENSITY DECREASED [None]
  - BODY HEIGHT DECREASED [None]
  - PULMONARY THROMBOSIS [None]
  - BONE PAIN [None]
  - ADVERSE REACTION [None]
  - DEPRESSED LEVEL OF CONSCIOUSNESS [None]
  - OEDEMA PERIPHERAL [None]
  - DYSURIA [None]
  - HEART RATE INCREASED [None]
  - MALAISE [None]
  - MYOCARDIAL INFARCTION [None]
  - ABASIA [None]
  - RENAL DISORDER [None]
  - GAIT DISTURBANCE [None]
  - BLOOD CALCIUM ABNORMAL [None]
  - MENTAL IMPAIRMENT [None]
  - INFECTION [None]
  - ARTHRITIS [None]
  - CONSTIPATION [None]
